FAERS Safety Report 8214279-1 (Version None)
Quarter: 2012Q1

REPORT INFORMATION
  Report Type: 
  Country: None (occurrence: None)
  Receive Date: 20120316
  Receipt Date: 20120307
  Transmission Date: 20120608
  Serious: Yes (Hospitalization, Other)
  Sender: FDA-Public Use
  Company Number: US-BAYER-2011-092158

PATIENT
  Age: 27 Year
  Sex: Female
  Weight: 49.887 kg

DRUGS (6)
  1. KLONOPIN [Concomitant]
     Dosage: 1/2 DAILY, PRN
  2. YAZ [Suspect]
     Indication: CONTRACEPTION
     Dosage: UNK
     Dates: start: 20050601, end: 20060201
  3. AMBIEN [Concomitant]
     Dosage: 1/2-1 DAILY
  4. PROZAC [Concomitant]
     Dosage: 20 MG, QD
     Route: 048
  5. YAZ [Suspect]
     Indication: PREMENSTRUAL SYNDROME
  6. PERCOCET [Concomitant]
     Dosage: 5 MG/325 MG EVERY 6 HOURS
     Route: 048
     Dates: start: 20070501

REACTIONS (3)
  - EMOTIONAL DISTRESS [None]
  - CHOLECYSTITIS CHRONIC [None]
  - GALLBLADDER DISORDER [None]
